FAERS Safety Report 6769627-6 (Version None)
Quarter: 2010Q2

REPORT INFORMATION
  Report Type: 
  Country: None (occurrence: None)
  Receive Date: 20100610
  Receipt Date: 20100603
  Transmission Date: 20101027
  Serious: Yes (Hospitalization)
  Sender: FDA-Public Use
  Company Number: 2010SP024532

PATIENT
  Age: 48 Year
  Sex: Male

DRUGS (7)
  1. PEGINTERFERON ALFA-2B [Suspect]
     Indication: HEPATITIS C
     Dosage: 120 MCG;QW;SC;  60 MCG;QW;SC
     Route: 058
     Dates: start: 20100224, end: 20100317
  2. PEGINTERFERON ALFA-2B [Suspect]
     Indication: HEPATITIS C
     Dosage: 120 MCG;QW;SC;  60 MCG;QW;SC
     Route: 058
     Dates: start: 20100324
  3. RIBAVIRIN [Suspect]
     Indication: HEPATITIS C
     Dosage: 1000 MG;QD;PO
     Route: 048
     Dates: start: 20100224
  4. ELTROMBOPAG (ELTROMBOPAG) [Suspect]
     Indication: THROMBOCYTOPENIA
     Dosage: PO;  75 MG;QD;PO
     Route: 048
     Dates: start: 20100113, end: 20100209
  5. ELTROMBOPAG (ELTROMBOPAG) [Suspect]
     Indication: THROMBOCYTOPENIA
     Dosage: PO;  75 MG;QD;PO
     Route: 048
     Dates: start: 20100210, end: 20100223
  6. BLINDED ELTROMBOPAG (ELTROMBOPAG) [Suspect]
     Indication: THROMBOCYTOPENIA
     Dosage: 75 MG;QD;PO;  100 MG;QD
     Route: 048
     Dates: start: 20100224, end: 20100302
  7. BLINDED ELTROMBOPAG (ELTROMBOPAG) [Suspect]
     Indication: THROMBOCYTOPENIA
     Dosage: 75 MG;QD;PO;  100 MG;QD
     Route: 048
     Dates: start: 20100303

REACTIONS (3)
  - BONE PAIN [None]
  - ILEITIS [None]
  - LYMPHADENITIS [None]
